FAERS Safety Report 21243460 (Version 4)
Quarter: 2022Q4

REPORT INFORMATION
  Report Type: Spontaneous
  Country: US (occurrence: US)
  Receive Date: 20220823
  Receipt Date: 20221025
  Transmission Date: 20230113
  Serious: No
  Sender: FDA-Public Use
  Company Number: US-JNJFOC-20220828551

PATIENT
  Age: 56 Year
  Sex: Male

DRUGS (8)
  1. TREMFYA [Suspect]
     Active Substance: GUSELKUMAB
     Indication: Psoriasis
     Route: 058
     Dates: start: 20220520
  2. TREMFYA [Suspect]
     Active Substance: GUSELKUMAB
     Route: 058
     Dates: start: 20220812
  3. ADVIL [Concomitant]
     Active Substance: IBUPROFEN
  4. VITAMIN D3 [Concomitant]
     Active Substance: CHOLECALCIFEROL
  5. AMBIEN [Concomitant]
     Active Substance: ZOLPIDEM TARTRATE
  6. DICLOFENAC [Concomitant]
     Active Substance: DICLOFENAC
  7. OLMESARTAN MEDOXOMIL [Concomitant]
     Active Substance: OLMESARTAN MEDOXOMIL
  8. ZOCARE [OFLOXACIN] [Concomitant]

REACTIONS (6)
  - Injection site haemorrhage [Unknown]
  - Needle issue [Unknown]
  - Device deployment issue [Unknown]
  - Product label issue [Unknown]
  - Accidental exposure to product [Unknown]
  - Product dose omission issue [Unknown]
